FAERS Safety Report 6618983-8 (Version None)
Quarter: 2010Q1

REPORT INFORMATION
  Report Type: 
  Country: None (occurrence: None)
  Receive Date: 20100308
  Receipt Date: 20100223
  Transmission Date: 20100710
  Serious: Yes (Hospitalization)
  Sender: FDA-Public Use
  Company Number: PHEH2010US02173

PATIENT
  Sex: Female
  Weight: 70.295 kg

DRUGS (13)
  1. ZOMETA [Suspect]
     Indication: HYPERCALCAEMIA OF MALIGNANCY
     Dosage: 4 MG, UNK
     Route: 042
     Dates: start: 20091125, end: 20091125
  2. ZOMETA [Suspect]
     Indication: MULTIPLE MYELOMA
  3. MULTI-VITAMINS [Concomitant]
  4. LASIX [Concomitant]
     Dosage: 80 MG, BID
  5. METOPROLOL TARTRATE [Concomitant]
     Indication: BLOOD PRESSURE
     Dosage: 25 MG DAILY
  6. BACTRIM [Concomitant]
     Dosage: MWF, 3X WEEK
     Route: 048
  7. VALTREX [Concomitant]
     Dosage: DAILY
  8. LIPITOR [Concomitant]
     Indication: BLOOD CHOLESTEROL INCREASED
     Dosage: 20 MG DAILY
  9. HEPARIN [Concomitant]
     Route: 058
  10. BABY ASPIRIN [Concomitant]
     Dosage: DAILY
     Route: 048
  11. MAXZIDE [Concomitant]
     Indication: HYPERTENSION
     Dosage: UNK, QD
     Route: 048
  12. CELEBREX [Concomitant]
     Indication: PAIN
     Dosage: UNK, QD
     Route: 048
     Dates: start: 20091107, end: 20100101
  13. CALCIUM WITH VITAMIN D [Concomitant]
     Indication: VITAMIN D DEFICIENCY
     Dosage: UNK, QD
     Route: 048
     Dates: start: 20091106

REACTIONS (7)
  - BLOOD PRESSURE DECREASED [None]
  - HAEMODIALYSIS [None]
  - HAEMOGLOBIN DECREASED [None]
  - HYPERSENSITIVITY [None]
  - PYREXIA [None]
  - RENAL FAILURE [None]
  - RENAL TUBULAR NECROSIS [None]
